FAERS Safety Report 7909402-X (Version None)
Quarter: 2011Q4

REPORT INFORMATION
  Report Type: 
  Country: None (occurrence: None)
  Receive Date: 20111111
  Receipt Date: 20111108
  Transmission Date: 20120403
  Serious: Yes (Other)
  Sender: FDA-Public Use
  Company Number: US-PFIZER INC-2010074687

PATIENT
  Sex: Female
  Weight: 56.236 kg

DRUGS (4)
  1. COD-LIVER OIL [Concomitant]
     Dosage: UNK
  2. AROMASIN [Suspect]
     Indication: AROMATASE INHIBITION THERAPY
  3. AROMASIN [Suspect]
     Indication: BREAST CANCER
     Dosage: UNK
     Route: 048
  4. RAMIPRIL [Concomitant]
     Indication: HYPERTENSION
     Dosage: 5 MG, 1X/DAY
     Route: 048

REACTIONS (2)
  - ARTHRALGIA [None]
  - HEART RATE IRREGULAR [None]
